FAERS Safety Report 4773874-2 (Version None)
Quarter: 2005Q3

REPORT INFORMATION
  Report Type: 
  Country: None (occurrence: None)
  Receive Date: 20050920
  Receipt Date: 20050910
  Transmission Date: 20060218
  Serious: Yes (Other)
  Sender: FDA-Public Use
  Company Number: IN-ROCHE-417146

PATIENT
  Age: 53 Year
  Sex: Female
  Weight: 65 kg

DRUGS (3)
  1. PEGASYS [Suspect]
     Indication: HEPATITIS C
     Dosage: FORM REPORTED AS PRE-FILLED SYRINGE.
     Route: 058
     Dates: start: 20050707, end: 20050818
  2. RIBAVIRIN [Concomitant]
     Dates: start: 20050707
  3. AMLODIPINE [Concomitant]
     Indication: HYPERTENSION

REACTIONS (17)
  - ABNORMAL DREAMS [None]
  - AMNESIA [None]
  - ASTHENIA [None]
  - BALANCE DISORDER [None]
  - CEREBRAL DISORDER [None]
  - COORDINATION ABNORMAL [None]
  - DYSKINESIA [None]
  - DYSTONIA [None]
  - FALL [None]
  - FATIGUE [None]
  - HAEMOGLOBIN DECREASED [None]
  - HAEMOLYSIS [None]
  - MIDDLE INSOMNIA [None]
  - MOOD SWINGS [None]
  - NYSTAGMUS [None]
  - PANIC ATTACK [None]
  - PYREXIA [None]
